FAERS Safety Report 7812880-8 (Version None)
Quarter: 2011Q4

REPORT INFORMATION
  Report Type: 
  Country: None (occurrence: None)
  Receive Date: 20111013
  Receipt Date: 20111011
  Transmission Date: 20120403
  Serious: Yes (Hospitalization)
  Sender: FDA-Public Use
  Company Number: US-BRISTOL-MYERS SQUIBB COMPANY-16152993

PATIENT
  Age: 50 Year
  Sex: Male

DRUGS (3)
  1. ZERIT [Suspect]
  2. REYATAZ [Suspect]
  3. EPIVIR [Suspect]

REACTIONS (1)
  - PNEUMONIA [None]
